FAERS Safety Report 4979527-X (Version None)
Quarter: 2006Q2

REPORT INFORMATION
  Report Type: 
  Country: None (occurrence: None)
  Receive Date: 20060418
  Receipt Date: 20060330
  Transmission Date: 20061013
  Serious: Yes (Hospitalization, Other)
  Sender: FDA-Public Use
  Company Number: GB200603007181

PATIENT
  Age: 40 Year
  Sex: Female

DRUGS (3)
  1. FLUOXETINE HCL [Suspect]
     Indication: POSTPARTUM DEPRESSION
     Dosage: 200 MG, ORAL
     Route: 048
  2. AMITRIPTYLINE HCL [Concomitant]
  3. CLOMIPRAMINE HCL [Concomitant]

REACTIONS (14)
  - CONFUSIONAL STATE [None]
  - DRY SKIN [None]
  - ELECTROCARDIOGRAM QRS COMPLEX PROLONGED [None]
  - GLASGOW COMA SCALE ABNORMAL [None]
  - GRAND MAL CONVULSION [None]
  - METABOLIC ACIDOSIS [None]
  - MULTIPLE DRUG OVERDOSE [None]
  - MYDRIASIS [None]
  - OVERDOSE [None]
  - SINUS TACHYCARDIA [None]
  - SKIN WARM [None]
  - SOMNOLENCE [None]
  - THERAPEUTIC AGENT TOXICITY [None]
  - VENTRICULAR TACHYCARDIA [None]
